FAERS Safety Report 16206155 (Version 1)
Quarter: 2019Q2

REPORT INFORMATION
  Report Type: Spontaneous
  Country: US (occurrence: US)
  Receive Date: 20190417
  Receipt Date: 20190417
  Transmission Date: 20190711
  Serious: Yes (Hospitalization, Other)
  Sender: FDA-Public Use
  Company Number: US-ALEMBIC-2019SCAL000226

PATIENT

DRUGS (2)
  1. VENLAFAXINE [Suspect]
     Active Substance: VENLAFAXINE HYDROCHLORIDE
     Indication: MAJOR DEPRESSION
     Dosage: UNK
  2. ALCOHOL. [Suspect]
     Active Substance: ALCOHOL
     Indication: PRODUCT USED FOR UNKNOWN INDICATION
     Dosage: UNK

REACTIONS (16)
  - Acute respiratory distress syndrome [Recovered/Resolved]
  - Hallucination, visual [Recovered/Resolved]
  - Clonus [Recovered/Resolved]
  - Hypertonia [Recovered/Resolved]
  - Tachycardia [Recovered/Resolved]
  - Gait inability [Recovered/Resolved]
  - Tremor [Recovered/Resolved]
  - Hypoxia [Recovered/Resolved]
  - Agitation [Recovered/Resolved]
  - Suicidal ideation [Recovered/Resolved]
  - Intentional overdose [Unknown]
  - Suicide attempt [Recovered/Resolved]
  - Non-cardiogenic pulmonary oedema [Recovered/Resolved]
  - Muscle rigidity [Recovered/Resolved]
  - Tachypnoea [Recovered/Resolved]
  - Serotonin syndrome [Recovered/Resolved]
